FAERS Safety Report 6751412-2 (Version None)
Quarter: 2010Q2

REPORT INFORMATION
  Report Type: 
  Country: None (occurrence: None)
  Receive Date: 20100526
  Receipt Date: 20100227
  Transmission Date: 20101027
  Serious: No
  Sender: FDA-Public Use
  Company Number: 305108

PATIENT
  Age: 75 Year
  Sex: Male

DRUGS (3)
  1. VICTOZA [Suspect]
     Indication: INSULIN-REQUIRING TYPE 2 DIABETES MELLITUS
     Dosage: SUBCUTANEOUS
     Route: 058
     Dates: start: 20100219, end: 20100225
  2. METFORMIN (METFORMIN) TABLET [Concomitant]
  3. GLUCOTROL [Concomitant]

REACTIONS (2)
  - CONFUSIONAL STATE [None]
  - DIZZINESS [None]
